FAERS Safety Report 6243285-1 (Version None)
Quarter: 2009Q2

REPORT INFORMATION
  Report Type: 
  Country: None (occurrence: None)
  Receive Date: 20090622
  Receipt Date: 20090622
  Transmission Date: 20091009
  Serious: Yes (Other)
  Sender: FDA-Public Use
  Company Number: None

PATIENT
  Age: 36 Year
  Sex: Female
  Weight: 77.1115 kg

DRUGS (1)
  1. ZICAM .05% OXYMETAZOLINE HYDROCHLORIDE ZICAM LLC MATRIXX INITIATIVES, [Suspect]
     Dosage: ONE SQUIRT EACH SIDE ONCE EVERY 12 HOUR ENDOSINUSIAL
     Route: 006

REACTIONS (2)
  - ANOSMIA [None]
  - HYPOSMIA [None]
